FAERS Safety Report 18787413 (Version 2)
Quarter: 2023Q1

REPORT INFORMATION
  Report Type: Spontaneous
  Country: US (occurrence: US)
  Receive Date: 20210125
  Receipt Date: 20230204
  Transmission Date: 20230417
  Serious: No
  Sender: FDA-Public Use
  Company Number: US-ACORDA-ACO_163841_2020

PATIENT
  Sex: Male
  Weight: 80.7 kg

DRUGS (3)
  1. AMPYRA [Suspect]
     Active Substance: DALFAMPRIDINE
     Indication: Multiple sclerosis
     Dosage: 10 MILLIGRAM
     Route: 048
     Dates: start: 20210423, end: 20210427
  2. AMPYRA [Suspect]
     Active Substance: DALFAMPRIDINE
     Indication: Gait disturbance
     Dosage: 1 DOSAGE FORM, QD
     Route: 048
     Dates: end: 20200211
  3. AMPYRA [Suspect]
     Active Substance: DALFAMPRIDINE
     Dosage: 1 DOSAGE FORM, BID
     Route: 048
     Dates: start: 20200127

REACTIONS (12)
  - Pain in extremity [Recovering/Resolving]
  - Screaming [Recovering/Resolving]
  - Fine motor skill dysfunction [Unknown]
  - Condition aggravated [Recovering/Resolving]
  - Ill-defined disorder [Unknown]
  - Pain [Unknown]
  - Gait inability [Not Recovered/Not Resolved]
  - Limb discomfort [Not Recovered/Not Resolved]
  - Gait disturbance [Unknown]
  - Balance disorder [Unknown]
  - Paraesthesia [Unknown]
  - Asthenia [Recovering/Resolving]

NARRATIVE: CASE EVENT DATE: 20200101
